FAERS Safety Report 21139491 (Version 1)
Quarter: 2022Q3

REPORT INFORMATION
  Report Type: Spontaneous
  Country: JP (occurrence: JP)
  Receive Date: 20220727
  Receipt Date: 20220727
  Transmission Date: 20221027
  Serious: Yes (Death)
  Sender: FDA-Public Use
  Company Number: JP-MSD-2207JPN001545J

PATIENT
  Age: 8 Decade
  Sex: Male

DRUGS (7)
  1. LAGEVRIO [Suspect]
     Active Substance: MOLNUPIRAVIR
     Indication: COVID-19 treatment
     Dosage: 800 MILLIGRAM, BID
     Route: 048
     Dates: start: 20220711, end: 20220712
  2. HALOPERIDOL [Concomitant]
     Active Substance: HALOPERIDOL
     Indication: Schizophrenia
     Dosage: 3 MG, 6 TIMES DAILY
     Route: 048
     Dates: start: 2010
  3. HALOPERIDOL [Concomitant]
     Active Substance: HALOPERIDOL
     Dosage: 1.5 MILLIGRAM, QD
     Route: 048
     Dates: end: 20220712
  4. ARTANE [Concomitant]
     Active Substance: TRIHEXYPHENIDYL HYDROCHLORIDE
     Indication: Parkinson^s disease
     Dosage: 2 MILLIGRAM, TID
     Route: 048
     Dates: start: 2010, end: 20220712
  5. LORAZEPAM [Concomitant]
     Active Substance: LORAZEPAM
     Indication: Neurosis
     Dosage: 0.5 MILLIGRAM, TID
     Route: 048
     Dates: start: 2010, end: 20220712
  6. ZOTEPINE [Concomitant]
     Active Substance: ZOTEPINE
     Indication: Schizophrenia
     Dosage: 50 MILLIGRAM, TID
     Route: 048
     Dates: start: 2010, end: 20220712
  7. LEVOMEPROMAZINE MALEATE [Concomitant]
     Active Substance: LEVOMEPROMAZINE MALEATE
     Indication: Schizophrenia
     Dosage: 50 MILLIGRAM, QD
     Route: 048
     Dates: start: 2010, end: 20220712

REACTIONS (2)
  - Dysphagia [Fatal]
  - Sputum retention [Fatal]

NARRATIVE: CASE EVENT DATE: 20220712
